FAERS Safety Report 8114756-8 (Version None)
Quarter: 2012Q1

REPORT INFORMATION
  Report Type: 
  Country: None (occurrence: None)
  Receive Date: 20120206
  Receipt Date: 20120130
  Transmission Date: 20120608
  Serious: Yes (Death, Other)
  Sender: FDA-Public Use
  Company Number: US-CELGENEUS-163-21880-12013222

PATIENT
  Age: 74 Year
  Sex: Female

DRUGS (24)
  1. REVLIMID [Suspect]
     Dosage: 10 MILLIGRAM
     Route: 048
     Dates: start: 20110101, end: 20110801
  2. PROCHLORPERAZINE [Concomitant]
     Route: 065
  3. ATROPINE [Concomitant]
     Route: 065
  4. LORAZEPAM [Concomitant]
     Route: 065
  5. SODIUM PHOSPHATES [Concomitant]
     Route: 065
  6. DOCUSATE SODIUM [Concomitant]
     Route: 065
  7. GATIFLOXACIN [Concomitant]
     Route: 047
  8. REVLIMID [Suspect]
     Indication: MULTIPLE MYELOMA
     Dosage: 10 MILLIGRAM
     Route: 048
     Dates: start: 20090101, end: 20091201
  9. FENTANYL CITRATE [Concomitant]
     Route: 065
  10. PERCOCET [Concomitant]
     Route: 065
  11. BISACODYL [Concomitant]
     Route: 065
  12. LISINOPRIL [Concomitant]
     Route: 065
  13. MUPIROCIN [Concomitant]
     Route: 065
  14. DICLOFENAC [Concomitant]
     Route: 047
  15. NOVOLIN 70/30 [Concomitant]
     Route: 065
  16. MORPHINE [Concomitant]
     Route: 065
  17. HYDROCHLOROTHIAZIDE [Concomitant]
     Route: 065
  18. CEPHALEXIN [Concomitant]
     Route: 065
  19. CYANOCOBALAMIN [Concomitant]
     Route: 065
  20. METFORMIN HCL [Concomitant]
     Route: 065
  21. ASCORBIC ACID [Concomitant]
     Route: 065
  22. SENNA [Concomitant]
     Route: 065
  23. CHLORHEXIDINE GLUCONATE [Concomitant]
     Route: 065
  24. VITAMIN D [Concomitant]
     Route: 065

REACTIONS (3)
  - PANCYTOPENIA [None]
  - NEOPLASM PROGRESSION [None]
  - MULTIPLE MYELOMA [None]
